FAERS Safety Report 5064429-3 (Version None)
Quarter: 2006Q3

REPORT INFORMATION
  Report Type: 
  Country: None (occurrence: None)
  Receive Date: 20060725
  Receipt Date: 20060712
  Transmission Date: 20061208
  Serious: Yes (Hospitalization, Other)
  Sender: FDA-Public Use
  Company Number: CLOF-10279

PATIENT
  Age: 48 Year
  Sex: Male

DRUGS (35)
  1. CLOFARABINE [Suspect]
     Indication: ACUTE MYELOID LEUKAEMIA
     Dosage: 46.8 MG QD X 5 IV
     Route: 042
     Dates: start: 20060517, end: 20060521
  2. IDARUBICIN HCL [Suspect]
     Indication: ACUTE MYELOID LEUKAEMIA
     Dosage: 21 MG QD X 3 IV
     Route: 042
     Dates: start: 20060517, end: 20060519
  3. MAGNESIUM SULFATE [Concomitant]
  4. POTASSIUM CHLORIDE [Concomitant]
  5. POTASSIUM PHOSPHATES [Concomitant]
  6. SODIUM PHOSPHATES [Concomitant]
  7. INSULIN [Concomitant]
  8. BACLOFEN [Concomitant]
  9. LINEZOLID [Concomitant]
  10. HYDROCORTIZONE [Concomitant]
  11. SODIUM CHLORIDE [Concomitant]
  12. CALCIUM GLUCONATE [Concomitant]
  13. FENTANYL [Concomitant]
  14. NEUPOGEN [Concomitant]
  15. AMPHOTERICIN B [Concomitant]
  16. DIPHENHYDRAMINE HCL [Concomitant]
  17. MEPERIDINE HCL [Concomitant]
  18. LEVALBUTEROL HCL [Concomitant]
  19. CILASTIN AND IMIPENEM [Concomitant]
  20. ACYCLOVIR [Concomitant]
  21. BISACODYL [Concomitant]
  22. FILODIPINE [Concomitant]
  23. NYSTATIN [Concomitant]
  24. ESOMEPRAZOLE MAGNESIUM [Concomitant]
  25. MUPIRICIN [Concomitant]
  26. LEUKINE [Concomitant]
  27. VORICONAZOLE [Concomitant]
  28. ZOSYN [Concomitant]
  29. PHYTONADIONE [Concomitant]
  30. VALPROIC ACID [Concomitant]
  31. CIPRO [Concomitant]
  32. MEROPENEM [Concomitant]
  33. CASPOFUNGIN [Concomitant]
  34. IPRATROPIUM BROMIDE [Concomitant]
  35. ALBUTEROL SPIROS [Concomitant]

REACTIONS (5)
  - BONE MARROW FAILURE [None]
  - FEBRILE NEUTROPENIA [None]
  - PNEUMONIA [None]
  - STAPHYLOCOCCAL BACTERAEMIA [None]
  - SYNCOPE [None]
